FAERS Safety Report 7923531-6 (Version None)
Quarter: 2011Q4

REPORT INFORMATION
  Report Type: 
  Country: None (occurrence: None)
  Receive Date: 20111117
  Receipt Date: 20110204
  Transmission Date: 20120403
  Serious: No
  Sender: FDA-Public Use
  Company Number: US-AMGEN-USASP2011007279

PATIENT
  Age: 54 Year
  Sex: Male

DRUGS (1)
  1. ENBREL [Suspect]
     Indication: PSORIASIS
     Dates: start: 20031027, end: 20101129

REACTIONS (5)
  - PROCEDURAL PAIN [None]
  - PRURITUS [None]
  - POST PROCEDURAL COMPLICATION [None]
  - PSORIASIS [None]
  - INGUINAL HERNIA [None]
